FAERS Safety Report 5684534-8 (Version None)
Quarter: 2008Q1

REPORT INFORMATION
  Report Type: 
  Country: None (occurrence: None)
  Receive Date: 20080328
  Receipt Date: 20070222
  Transmission Date: 20080703
  Serious: Yes (Death)
  Sender: FDA-Public Use
  Company Number: US-BRISTOL-MYERS SQUIBB COMPANY-13611116

PATIENT
  Age: 64 Year
  Sex: Male

DRUGS (5)
  1. ERBITUX [Suspect]
     Indication: NEOPLASM MALIGNANT
     Dosage: DOSING INCLUDED 625 MG LOT#06C00289A, 390 MG LOT# 06C00382B AND 390 MG LOT# 06C00380A
     Route: 042
     Dates: start: 20060920, end: 20061011
  2. BENADRYL [Concomitant]
  3. TYLENOL (CAPLET) [Concomitant]
  4. KYTRIL [Concomitant]
  5. ARANESP [Concomitant]

REACTIONS (2)
  - HYPOPHARYNGEAL CANCER [None]
  - MALIGNANT NEOPLASM PROGRESSION [None]
